FAERS Safety Report 6429913-6 (Version None)
Quarter: 2009Q4

REPORT INFORMATION
  Report Type: 
  Country: None (occurrence: None)
  Receive Date: 20091106
  Receipt Date: 20091030
  Transmission Date: 20100525
  Serious: Yes (Other)
  Sender: FDA-Public Use
  Company Number: US-JNJFOC-20091003449

PATIENT
  Sex: Female

DRUGS (3)
  1. ARESTIN [Suspect]
     Dosage: 2 CAPSULES
     Route: 065
     Dates: start: 20080922, end: 20090629
  2. ARESTIN [Suspect]
     Dosage: 1 CAPSULE
     Route: 065
     Dates: start: 20080922, end: 20090629
  3. ARESTIN [Suspect]
     Indication: GINGIVAL RECESSION
     Dosage: 2 CAPSULES
     Route: 065
     Dates: start: 20080922, end: 20090629

REACTIONS (1)
  - THYROID DISORDER [None]
